FAERS Safety Report 20929384 (Version 2)
Quarter: 2022Q2

REPORT INFORMATION
  Report Type: Report from Study
  Country: ES (occurrence: ES)
  Receive Date: 20220608
  Receipt Date: 20220621
  Transmission Date: 20220721
  Serious: Yes (Hospitalization, Other)
  Sender: FDA-Public Use
  Company Number: ES-BRISTOL-MYERS SQUIBB COMPANY-2022-048679

PATIENT
  Age: 62 Year
  Sex: Male
  Weight: 80.7 kg

DRUGS (26)
  1. LENALIDOMIDE [Suspect]
     Active Substance: LENALIDOMIDE
     Indication: Follicular lymphoma
     Route: 048
     Dates: start: 20220427
  2. EPCORITAMAB [Suspect]
     Active Substance: EPCORITAMAB
     Indication: Follicular lymphoma
     Dosage: SINGLE DOSE
     Route: 058
     Dates: start: 20220504, end: 20220504
  3. EPCORITAMAB [Suspect]
     Active Substance: EPCORITAMAB
     Route: 058
     Dates: start: 20220511, end: 20220511
  4. EPCORITAMAB [Suspect]
     Active Substance: EPCORITAMAB
     Dosage: SINGLE DOSE
     Route: 058
     Dates: start: 20220427, end: 20220427
  5. RITUXIMAB [Suspect]
     Active Substance: RITUXIMAB
     Indication: Follicular lymphoma
     Route: 042
     Dates: start: 20220427, end: 20220511
  6. ACETAMINOPHEN [Concomitant]
     Active Substance: ACETAMINOPHEN
     Dates: start: 20220511, end: 20220511
  7. DEXAMETHASONE [Concomitant]
     Active Substance: DEXAMETHASONE
     Dates: start: 20220511, end: 20220511
  8. POLARAMINE [Concomitant]
     Active Substance: DEXCHLORPHENIRAMINE MALEATE
     Dates: start: 20220511, end: 20220511
  9. SODIUM CHLORIDE [Concomitant]
     Active Substance: SODIUM CHLORIDE
     Dates: start: 20220427, end: 20220427
  10. PREDNISONE [Concomitant]
     Active Substance: PREDNISONE
     Dates: start: 20220511, end: 20220514
  11. DICLOFENAC [Concomitant]
     Active Substance: DICLOFENAC
     Dates: start: 20220504, end: 20220504
  12. SODIUM CHLORIDE [Concomitant]
     Active Substance: SODIUM CHLORIDE
     Indication: Product used for unknown indication
     Route: 065
     Dates: start: 20220427, end: 20220427
  13. ACYCLOVIR [Concomitant]
     Active Substance: ACYCLOVIR
     Dates: start: 20220411
  14. ACTRAPID [Concomitant]
     Active Substance: INSULIN HUMAN
     Dates: start: 20220512
  15. ALLOPURINOL [Concomitant]
     Active Substance: ALLOPURINOL
     Dates: start: 20220411
  16. ALPRAZOLAM [Concomitant]
     Active Substance: ALPRAZOLAM
  17. DULOXETINE [Concomitant]
     Active Substance: DULOXETINE
  18. ENALAPRIL [Concomitant]
     Active Substance: ENALAPRIL
  19. LANTUS [Concomitant]
     Active Substance: INSULIN GLARGINE
  20. LEUCOVORIN CALCIUM [Concomitant]
     Active Substance: LEUCOVORIN CALCIUM
  21. LORAZEPAM [Concomitant]
     Active Substance: LORAZEPAM
  22. METFORMIN HYDROCHLORIDE [Concomitant]
     Active Substance: METFORMIN HYDROCHLORIDE
  23. OMEPRAZOLE SODIUM [Concomitant]
     Active Substance: OMEPRAZOLE SODIUM
  24. OMEPRAZOLE SODIUM [Concomitant]
     Active Substance: OMEPRAZOLE SODIUM
  25. OMEPRAZOLE SODIUM [Concomitant]
     Active Substance: OMEPRAZOLE SODIUM
  26. OMEPRAZOLE SODIUM [Concomitant]
     Active Substance: OMEPRAZOLE SODIUM

REACTIONS (1)
  - Abdominal infection [Recovered/Resolved]

NARRATIVE: CASE EVENT DATE: 20220517
